FAERS Safety Report 21381519 (Version 1)
Quarter: 2022Q3

REPORT INFORMATION
  Report Type: Spontaneous
  Country: US (occurrence: US)
  Receive Date: 20220927
  Receipt Date: 20220927
  Transmission Date: 20221027
  Serious: No
  Sender: FDA-Public Use
  Company Number: US-MYLANLABS-2022M1094072

PATIENT
  Sex: Female

DRUGS (2)
  1. CLONIDINE TRANSDERMAL SYSTEM [Suspect]
     Active Substance: CLONIDINE
     Indication: Blood pressure measurement
     Dosage: 0.2 MILLIGRAM, QD (ONE PATCH EVERY WEEK)
     Route: 062
  2. CLONIDINE TRANSDERMAL SYSTEM [Suspect]
     Active Substance: CLONIDINE
     Indication: Pain

REACTIONS (2)
  - Product adhesion issue [Unknown]
  - Off label use [Unknown]
